FAERS Safety Report 20481054 (Version 2)
Quarter: 2022Q1

REPORT INFORMATION
  Report Type: Report from Study
  Country: BR (occurrence: BR)
  Receive Date: 20220216
  Receipt Date: 20220301
  Transmission Date: 20220424
  Serious: Yes (Other)
  Sender: FDA-Public Use
  Company Number: BR-NOVARTISPH-NVSC2022BR035294

PATIENT
  Age: 17 Year
  Sex: Male
  Weight: 92 kg

DRUGS (2)
  1. TRILEPTAL [Suspect]
     Active Substance: OXCARBAZEPINE
     Indication: Epilepsy
     Dosage: 300 MG
     Route: 065
  2. TRILEPTAL [Suspect]
     Active Substance: OXCARBAZEPINE
     Dosage: 2 DOSAGE FORM, Q12H
     Route: 048

REACTIONS (3)
  - Seizure [Not Recovered/Not Resolved]
  - Schizophrenia [Not Recovered/Not Resolved]
  - Stereotypy [Not Recovered/Not Resolved]
